FAERS Safety Report 9347416 (Version 1)
Quarter: 2013Q2

REPORT INFORMATION
  Report Type: Spontaneous
  Country: GB (occurrence: GB)
  Receive Date: 20130613
  Receipt Date: 20130613
  Transmission Date: 20140414
  Serious: Yes (Other)
  Sender: FDA-Public Use
  Company Number: GB-MYLANLABS-2013S1012043

PATIENT
  Age: 28 Year
  Sex: Male
  Weight: 50 kg

DRUGS (1)
  1. AZATHIOPRINE [Suspect]
     Indication: CROHN^S DISEASE
     Route: 048
     Dates: start: 20130507

REACTIONS (3)
  - Nausea [Unknown]
  - Chills [Unknown]
  - Vomiting [Unknown]
